FAERS Safety Report 18758190 (Version 2)
Quarter: 2021Q1

REPORT INFORMATION
  Report Type: Spontaneous
  Country: CA (occurrence: CA)
  Receive Date: 20210119
  Receipt Date: 20210127
  Transmission Date: 20210419
  Serious: Yes (Death, Life-Threatening, Other)
  Sender: FDA-Public Use
  Company Number: CA-MYLANLABS-2011S1004960

PATIENT
  Age: 61 Year
  Sex: Male

DRUGS (3)
  1. EPINEPHRINE. [Suspect]
     Active Substance: EPINEPHRINE
     Dosage: 0.3 MILLIGRAM, TOTAL
     Route: 030
     Dates: start: 20030728, end: 20030728
  2. METOPROLOL. [Suspect]
     Active Substance: METOPROLOL
     Indication: HYPERTENSION
     Dosage: 200 MG,QD (100 MG, QD)
     Route: 065
  3. ACCUPRIL [Concomitant]
     Active Substance: QUINAPRIL HYDROCHLORIDE
     Dosage: UNK

REACTIONS (8)
  - Drug ineffective [Fatal]
  - Angioedema [Fatal]
  - Anaphylactic shock [Fatal]
  - Cardio-respiratory arrest [Fatal]
  - Expired product administered [Unknown]
  - Drug interaction [Fatal]
  - Vomiting [Fatal]
  - Dyspnoea [Fatal]

NARRATIVE: CASE EVENT DATE: 20030728
